FAERS Safety Report 7668259-5 (Version None)
Quarter: 2011Q3

REPORT INFORMATION
  Report Type: 
  Country: None (occurrence: None)
  Receive Date: 20110808
  Receipt Date: 20110804
  Transmission Date: 20111222
  Serious: Yes (Hospitalization, Other)
  Sender: FDA-Public Use
  Company Number: GB-TEVA-281779ISR

PATIENT
  Age: 33 Year
  Sex: Female
  Weight: 80 kg

DRUGS (3)
  1. NEORAL [Interacting]
     Indication: PSORIASIS
     Dates: start: 20050101, end: 20110413
  2. METHOTREXATE [Suspect]
  3. INFLIXIMAB [Interacting]

REACTIONS (5)
  - RENAL CANCER [None]
  - DRUG INTERACTION [None]
  - ACUTE PSYCHOSIS [None]
  - DELIRIUM [None]
  - BLOOD MAGNESIUM DECREASED [None]
